FAERS Safety Report 7454842-9 (Version None)
Quarter: 2011Q2

REPORT INFORMATION
  Report Type: 
  Country: None (occurrence: None)
  Receive Date: 20110503
  Receipt Date: 20110428
  Transmission Date: 20111010
  Serious: Yes (Hospitalization)
  Sender: FDA-Public Use
  Company Number: US-ELI_LILLY_AND_COMPANY-US201104007781

PATIENT
  Sex: Female
  Weight: 92 kg

DRUGS (4)
  1. PEMETREXED [Suspect]
     Dosage: 2000 MG, OTHER
     Route: 042
  2. CISPLATIN [Suspect]
     Indication: NON-SMALL CELL LUNG CANCER
     Dosage: 75 MG/M2, IV OVER 60 MIN DAY 1
     Route: 042
     Dates: start: 20110324
  3. CISPLATIN [Suspect]
     Dosage: 296 MG, OTHER
     Route: 042
  4. PEMETREXED [Suspect]
     Indication: NON-SMALL CELL LUNG CANCER
     Dosage: 500 MG/M2, OVER 10 MIN ON DAY 1
     Route: 042
     Dates: start: 20110324

REACTIONS (1)
  - PULMONARY EMBOLISM [None]
